FAERS Safety Report 4284218-7 (Version None)
Quarter: 2004Q1

REPORT INFORMATION
  Report Type: 
  Country: None (occurrence: None)
  Receive Date: 20040203
  Receipt Date: 20011204
  Transmission Date: 20041129
  Serious: Yes (Hospitalization)
  Sender: FDA-Public Use
  Company Number: GB-ROCHE-303127

PATIENT
  Age: 66 Year
  Sex: Male
  Weight: 71.2 kg

DRUGS (5)
  1. DACLIZUMAB [Suspect]
     Route: 042
     Dates: start: 20011006, end: 20011006
  2. DACLIZUMAB [Suspect]
     Route: 042
     Dates: start: 20011019, end: 20011130
  3. MYCOPHENOLATE MOFETIL [Suspect]
     Route: 048
     Dates: start: 20011006
  4. PREDNISOLONE [Concomitant]
     Dates: start: 20011007
  5. CYCLOSPORINE [Concomitant]
     Dates: start: 20011006

REACTIONS (2)
  - CYTOMEGALOVIRUS INFECTION [None]
  - WHITE BLOOD CELL COUNT DECREASED [None]
